FAERS Safety Report 5150826-4 (Version None)
Quarter: 2006Q4

REPORT INFORMATION
  Report Type: 
  Country: None (occurrence: None)
  Receive Date: 20061108
  Receipt Date: 20061025
  Transmission Date: 20070319
  Serious: Yes (Death, Hospitalization)
  Sender: FDA-Public Use
  Company Number: 149276ISR

PATIENT
  Age: 45 Year
  Sex: Male

DRUGS (1)
  1. CLARITHROMYCIN [Suspect]
     Indication: LOWER RESPIRATORY TRACT INFECTION
     Dosage: 1000 MG (500 MG, 2 IN 1 D); ORAL
     Route: 048
     Dates: start: 20060827, end: 20060902

REACTIONS (3)
  - DIARRHOEA [None]
  - PSEUDOMEMBRANOUS COLITIS [None]
  - SEPSIS [None]
